FAERS Safety Report 10200331 (Version 3)
Quarter: 2014Q2

REPORT INFORMATION
  Report Type: Spontaneous
  Country: GB (occurrence: GB)
  Receive Date: 20140527
  Receipt Date: 20140625
  Transmission Date: 20141212
  Serious: Yes (Hospitalization, Other)
  Sender: FDA-Public Use
  Company Number: PHHY2014GB062343

PATIENT
  Age: 73 Year
  Sex: Male
  Weight: 63 kg

DRUGS (15)
  1. BISOPROLOL FUMARATE [Suspect]
     Indication: PRODUCT USED FOR UNKNOWN INDICATION
     Dosage: 2.5 MG, QD
     Route: 048
  2. BISOPROLOL FUMARATE [Suspect]
     Dosage: 1.25 MG, QD
     Route: 048
  3. PREDNISOLONE [Suspect]
     Indication: DIFFUSE LARGE B-CELL LYMPHOMA
     Dosage: 100 MG, DAILY DOSE
     Route: 065
     Dates: start: 20140306
  4. DOXORUBICIN [Suspect]
     Indication: DIFFUSE LARGE B-CELL LYMPHOMA
     Dosage: 84 MG, DAILY DOSE
     Route: 065
     Dates: start: 20140306
  5. RITUXIMAB [Suspect]
     Indication: DIFFUSE LARGE B-CELL LYMPHOMA
     Dosage: 600 MG, DAILY DOSE
     Route: 065
     Dates: start: 20140306, end: 20140416
  6. CYCLOPHOSPHAMIDE [Suspect]
     Indication: DIFFUSE LARGE B-CELL LYMPHOMA
     Dosage: 1300 MG, DAILY DOSE
     Dates: start: 20140306
  7. VINCRISTINE [Suspect]
     Indication: DIFFUSE LARGE B-CELL LYMPHOMA
     Dosage: 2 MG, DAILY DOSE
     Dates: start: 20140306
  8. MACROGOL [Concomitant]
     Route: 065
  9. MACROGOL [Concomitant]
     Dosage: UNK
     Route: 065
  10. PARACETAMOL [Concomitant]
     Route: 065
  11. PARACETAMOL [Concomitant]
     Dosage: UNK
     Route: 065
  12. SENNA [Concomitant]
     Route: 065
  13. SENNA [Concomitant]
     Dosage: UNK
     Route: 065
  14. SIMVASTATIN [Concomitant]
     Route: 065
     Dates: start: 20140217, end: 20140424
  15. SIMVASTATIN [Concomitant]
     Dosage: UNK
     Route: 065
     Dates: start: 20140217, end: 20140424

REACTIONS (4)
  - Fatigue [Unknown]
  - Hypotension [Unknown]
  - Diarrhoea [Recovered/Resolved]
  - Neutropenia [Unknown]
